FAERS Safety Report 20291561 (Version 3)
Quarter: 2022Q1

REPORT INFORMATION
  Report Type: Spontaneous
  Country: CA (occurrence: CA)
  Receive Date: 20220104
  Receipt Date: 20220317
  Transmission Date: 20220423
  Serious: Yes (Other)
  Sender: FDA-Public Use
  Company Number: CA-AMERICAN REGENT INC-2021003405

PATIENT
  Sex: Female

DRUGS (3)
  1. VENOFER [Suspect]
     Active Substance: IRON SUCROSE
     Indication: Iron deficiency anaemia
     Dosage: UNK UNK, SINGLE
     Route: 065
  2. VENOFER [Suspect]
     Active Substance: IRON SUCROSE
     Dosage: 300 MILLIGRAM/ 250 MG IV BAG
     Route: 042
     Dates: start: 20211124, end: 20211124
  3. SODIUM CHLORIDE [Concomitant]
     Active Substance: SODIUM CHLORIDE
     Indication: Catheter management
     Dosage: 10 CUBIC CENTIMETRE, SINGLE
     Dates: start: 20211124, end: 20211124

REACTIONS (9)
  - Erythema [Unknown]
  - Paraesthesia [Unknown]
  - Oedema peripheral [Unknown]
  - Dizziness [Unknown]
  - Back pain [Unknown]
  - Cough [Unknown]
  - Product quality issue [Unknown]
  - Incorrect product administration duration [Unknown]
  - Drug monitoring procedure not performed [Unknown]

NARRATIVE: CASE EVENT DATE: 20211124
